FAERS Safety Report 4830187-8 (Version None)
Quarter: 2005Q4

REPORT INFORMATION
  Report Type: 
  Country: None (occurrence: None)
  Receive Date: 20051117
  Receipt Date: 20051004
  Transmission Date: 20060501
  Serious: Yes (Hospitalization, Other)
  Sender: FDA-Public Use
  Company Number: US-MERCK-0510USA03029

PATIENT
  Age: 62 Year
  Sex: Male
  Weight: 80 kg

DRUGS (10)
  1. VIOXX [Suspect]
     Indication: ARTHRITIS
     Route: 048
     Dates: start: 19991201, end: 20010701
  2. NORVASC [Concomitant]
     Route: 065
  3. SYNTHROID [Concomitant]
     Route: 065
  4. DIPYRIDAMOLE [Concomitant]
     Route: 065
  5. PREVACID [Concomitant]
     Route: 065
  6. WARFARIN [Concomitant]
     Route: 065
  7. MAGNESIUM (UNSPECIFIED) [Concomitant]
     Route: 065
  8. VITAMIN E [Concomitant]
     Route: 065
  9. VITAMINS (UNSPECIFIED) [Concomitant]
     Route: 065
  10. GARLIC EXTRACT [Concomitant]
     Route: 065

REACTIONS (6)
  - CARPAL TUNNEL SYNDROME [None]
  - CEREBROVASCULAR ACCIDENT [None]
  - HAEMORRHAGE [None]
  - LIMB INJURY [None]
  - MYOCARDIAL INFARCTION [None]
  - ULCER HAEMORRHAGE [None]
